FAERS Safety Report 9760895 (Version 1)
Quarter: 2013Q4

REPORT INFORMATION
  Report Type: Spontaneous
  Country: US (occurrence: US)
  Receive Date: 20131216
  Receipt Date: 20131216
  Transmission Date: 20140711
  Serious: No
  Sender: FDA-Public Use
  Company Number: US-PFIZER INC-2013357795

PATIENT
  Age: 77 Year
  Sex: Female

DRUGS (10)
  1. XELJANZ [Suspect]
     Indication: RHEUMATOID ARTHRITIS
     Dosage: 5 MG, 2X/DAY
     Route: 048
     Dates: start: 20131114
  2. SULFASALAZINE [Concomitant]
     Dosage: UNK
  3. MEDROL [Concomitant]
     Dosage: UNK
  4. MOBIC [Concomitant]
     Dosage: UNK
  5. ECOTRIN [Concomitant]
     Dosage: UNK
  6. PLAVIX [Concomitant]
     Dosage: UNK
  7. LIPITOR [Concomitant]
     Dosage: UNK
  8. NEURONTIN [Concomitant]
     Dosage: UNK
  9. ULTRAM [Concomitant]
     Dosage: UNK
  10. ZETIA [Concomitant]
     Dosage: UNK

REACTIONS (2)
  - Nausea [Unknown]
  - Somnolence [Unknown]
